FAERS Safety Report 11261148 (Version 1)
Quarter: 2015Q3

REPORT INFORMATION
  Report Type: Spontaneous
  Country: US (occurrence: US)
  Receive Date: 20150710
  Receipt Date: 20150710
  Transmission Date: 20151125
  Serious: No
  Sender: FDA-Public Use
  Company Number: US-PURDUE-USA-2015-0120811

PATIENT
  Age: 28 Year
  Sex: Female

DRUGS (1)
  1. BUTRANS [Suspect]
     Active Substance: BUPRENORPHINE
     Indication: PAIN
     Dosage: 20 MCG/HR, WEEKLY
     Route: 062
     Dates: start: 20140116

REACTIONS (15)
  - Hyperhidrosis [Unknown]
  - Application site scar [Unknown]
  - Application site swelling [Unknown]
  - Restlessness [Unknown]
  - Formication [Unknown]
  - Application site ulcer [Unknown]
  - Application site haemorrhage [Unknown]
  - Application site inflammation [Unknown]
  - Application site vesicles [Unknown]
  - Dyspnoea [Unknown]
  - Drug effect increased [Unknown]
  - Feeling jittery [Unknown]
  - Application site pruritus [Not Recovered/Not Resolved]
  - Application site erythema [Unknown]
  - Drug ineffective [Unknown]

NARRATIVE: CASE EVENT DATE: 201401
